FAERS Safety Report 5794324-3 (Version None)
Quarter: 2008Q2

REPORT INFORMATION
  Report Type: 
  Country: None (occurrence: None)
  Receive Date: 20080625
  Receipt Date: 20080620
  Transmission Date: 20081010
  Serious: Yes (Other)
  Sender: FDA-Public Use
  Company Number: 2008SP011868

PATIENT
  Age: 87 Year
  Sex: Female
  Weight: 49.8957 kg

DRUGS (4)
  1. MIRALAX [Suspect]
     Indication: FAECES HARD
     Dosage: ;UNK;PO
     Route: 048
     Dates: end: 20080610
  2. LASIX [Concomitant]
  3. CARDIZEM [Concomitant]
  4. XANAX [Concomitant]

REACTIONS (3)
  - HAEMORRHOIDS [None]
  - RECTAL HAEMORRHAGE [None]
  - RECTAL TENESMUS [None]
